FAERS Safety Report 15748996 (Version 1)
Quarter: 2018Q4

REPORT INFORMATION
  Report Type: Spontaneous
  Country: US (occurrence: US)
  Receive Date: 20181219
  Receipt Date: 20181219
  Transmission Date: 20190205
  Serious: Yes (Hospitalization)
  Sender: FDA-Public Use
  Company Number: None

PATIENT
  Age: 72 Year
  Sex: Female
  Weight: 72.57 kg

DRUGS (1)
  1. EZETIMIBE 10MG [Suspect]
     Active Substance: EZETIMIBE
     Indication: BLOOD CHOLESTEROL INCREASED
     Route: 048
     Dates: start: 20181203, end: 20181205

REACTIONS (4)
  - Abdominal pain upper [None]
  - Dyspnoea [None]
  - Abdominal pain [None]
  - Chest pain [None]

NARRATIVE: CASE EVENT DATE: 20181206
